FAERS Safety Report 6506215-0 (Version None)
Quarter: 2009Q4

REPORT INFORMATION
  Report Type: 
  Country: None (occurrence: None)
  Receive Date: 20091218
  Receipt Date: 20091207
  Transmission Date: 20100525
  Serious: Yes (Hospitalization, Other)
  Sender: FDA-Public Use
  Company Number: PHHY2009LK54194

PATIENT
  Age: 25 Year
  Sex: Male

DRUGS (4)
  1. CYCLOSPORINE [Suspect]
     Indication: RENAL TRANSPLANT
     Dosage: 200 MG, BID
  2. CYCLOSPORINE [Suspect]
     Dosage: 200 MG MORNING, 100 MG AT NIGHT
  3. CYCLOSPORINE [Suspect]
     Dosage: 200 MG DAILY
  4. PREDNISOLONE [Suspect]
     Indication: RENAL TRANSPLANT

REACTIONS (14)
  - BRAIN OEDEMA [None]
  - CEREBRAL INFARCTION [None]
  - DIABETES MELLITUS [None]
  - HEADACHE [None]
  - HEMIPARESIS [None]
  - HYPERREFLEXIA [None]
  - HYPOKINESIA [None]
  - LYMPHOCYTOSIS [None]
  - PAPILLOEDEMA [None]
  - PARTIAL SEIZURES [None]
  - PYREXIA [None]
  - SUPERIOR SAGITTAL SINUS THROMBOSIS [None]
  - THROMBOCYTOPENIA [None]
  - VOMITING [None]
